FAERS Safety Report 23668373 (Version 1)
Quarter: 2024Q1

REPORT INFORMATION
  Report Type: Spontaneous
  Country: AZ (occurrence: None)
  Receive Date: 20240323
  Receipt Date: 20240323
  Transmission Date: 20240409
  Serious: Yes (unspecified)
  Sender: FDA-Public Use
  Company Number: None

PATIENT
  Age: 32 Year
  Sex: Female
  Weight: 60 kg

DRUGS (5)
  1. CABERGOLINE [Suspect]
     Active Substance: CABERGOLINE
     Dates: start: 20240309, end: 20240316
  2. IRON [Concomitant]
     Active Substance: IRON
  3. LUGOL [Concomitant]
     Active Substance: IODINE\POTASSIUM IODIDE
  4. selenomax [Concomitant]
  5. ZINC [Concomitant]
     Active Substance: PYRITHIONE ZINC\ZINC\ZINC CHLORIDE

REACTIONS (5)
  - Pruritus [None]
  - Urticaria [None]
  - Hypersensitivity [None]
  - Ear discomfort [None]
  - Skin burning sensation [None]
